FAERS Safety Report 11189832 (Version 1)
Quarter: 2015Q2

REPORT INFORMATION
  Report Type: Spontaneous
  Country: US (occurrence: None)
  Receive Date: 20150601
  Receipt Date: 20150601
  Transmission Date: 20150821
  Serious: Yes (Hospitalization, Other)
  Sender: FDA-Public Use
  Company Number: 2012-003318

PATIENT
  Age: 88 Year
  Sex: Female
  Weight: 49.6 kg

DRUGS (12)
  1. TRIAMTERENE/HCTZ (HYDROCHLOROTHIAZIDE, TRIAMTERENE) [Concomitant]
  2. FEXOFENADINE [Concomitant]
     Active Substance: FEXOFENADINE\FEXOFENADINE HYDROCHLORIDE
  3. ALENDRONATE (ALENDRONATE SODIUM) [Suspect]
     Active Substance: ALENDRONATE SODIUM
     Dates: start: 20100104, end: 201001
  4. FOSAMAX [Suspect]
     Active Substance: ALENDRONATE SODIUM
     Indication: OSTEOPOROSIS
     Route: 048
     Dates: start: 20040928, end: 201103
  5. MELOXICAM. [Concomitant]
     Active Substance: MELOXICAM
  6. HYDROCODONE W/PARACETAMOL (HYDROCODONE, PARACETAMOL) [Concomitant]
  7. HYDROCHLOROTHIAZIDE. [Concomitant]
     Active Substance: HYDROCHLOROTHIAZIDE
  8. ACTONEL [Suspect]
     Active Substance: RISEDRONATE SODIUM
     Indication: OSTEOPOROSIS
     Route: 048
     Dates: start: 20110322, end: 201109
  9. ALPRAZOLAM. [Concomitant]
     Active Substance: ALPRAZOLAM
  10. ARICEPT [Concomitant]
     Active Substance: DONEPEZIL HYDROCHLORIDE
  11. METOPROLOL [Concomitant]
     Active Substance: METOPROLOL
  12. LEXAPRO [Concomitant]
     Active Substance: ESCITALOPRAM OXALATE

REACTIONS (5)
  - Fall [None]
  - Arthralgia [None]
  - Periprosthetic fracture [None]
  - Low turnover osteopathy [None]
  - Femur fracture [None]

NARRATIVE: CASE EVENT DATE: 20110825
